FAERS Safety Report 24253548 (Version 1)
Quarter: 2024Q3

REPORT INFORMATION
  Report Type: Spontaneous
  Country: ID (occurrence: ID)
  Receive Date: 20240827
  Receipt Date: 20240827
  Transmission Date: 20241017
  Serious: Yes (Other)
  Sender: BAUSCH AND LOMB
  Company Number: ID-MLMSERVICE-20240820-PI162714-00271-6

PATIENT
  Age: 11 Year
  Sex: Female

DRUGS (9)
  1. METRONIDAZOLE [Suspect]
     Active Substance: METRONIDAZOLE
     Indication: HIV infection WHO clinical stage IV
     Route: 065
  2. ETHAMBUTOL [Suspect]
     Active Substance: ETHAMBUTOL HYDROCHLORIDE
     Indication: HIV infection WHO clinical stage IV
     Route: 065
  3. PREDNISONE [Suspect]
     Active Substance: PREDNISONE
     Indication: HIV infection WHO clinical stage IV
     Route: 065
  4. CEFOTAXIME [Suspect]
     Active Substance: CEFOTAXIME SODIUM
     Indication: HIV infection WHO clinical stage IV
     Route: 065
  5. FLUCONAZOLE [Suspect]
     Active Substance: FLUCONAZOLE
     Indication: HIV infection WHO clinical stage IV
     Route: 065
  6. RIFAMPIN [Suspect]
     Active Substance: RIFAMPIN
     Indication: HIV infection WHO clinical stage IV
     Route: 065
  7. ISONIAZID [Suspect]
     Active Substance: ISONIAZID
     Indication: HIV infection WHO clinical stage IV
     Route: 065
  8. VITAMIN B6 [Suspect]
     Active Substance: PYRIDOXINE HYDROCHLORIDE
     Indication: HIV infection WHO clinical stage IV
     Route: 065
  9. ZINC [Suspect]
     Active Substance: ZINC
     Indication: HIV infection WHO clinical stage IV
     Route: 065

REACTIONS (1)
  - Erythema multiforme [Recovered/Resolved]
